FAERS Safety Report 4802550-2 (Version None)
Quarter: 2005Q4

REPORT INFORMATION
  Report Type: 
  Country: None (occurrence: None)
  Receive Date: 20051018
  Receipt Date: 20050701
  Transmission Date: 20060501
  Serious: Yes (Hospitalization)
  Sender: FDA-Public Use
  Company Number: US-MERCK-0507USA00491

PATIENT
  Age: 65 Year
  Sex: Male
  Weight: 70 kg

DRUGS (10)
  1. VIOXX [Suspect]
     Indication: BACK PAIN
     Route: 048
     Dates: start: 20020429, end: 20041004
  2. VIOXX [Suspect]
     Route: 048
     Dates: start: 20020429, end: 20041004
  3. VIOXX [Suspect]
     Indication: ARTHRALGIA
     Route: 048
     Dates: start: 20020429, end: 20041004
  4. VIOXX [Suspect]
     Route: 048
     Dates: start: 20020429, end: 20041004
  5. ALBUTEROL [Concomitant]
     Indication: ASTHMA
     Route: 065
  6. SINGULAIR [Concomitant]
     Indication: ASTHMA
     Route: 065
  7. PREDNISONE [Concomitant]
     Indication: ASTHMA
     Route: 065
  8. FLOVENT [Concomitant]
     Indication: ASTHMA
     Route: 065
  9. ATROVENT [Concomitant]
     Indication: ASTHMA
     Route: 065
  10. VENTOLIN [Concomitant]
     Indication: ASTHMA
     Route: 065

REACTIONS (5)
  - CATARACT [None]
  - CEREBROVASCULAR ACCIDENT [None]
  - CHRONIC OBSTRUCTIVE PULMONARY DISEASE [None]
  - EYE DISORDER [None]
  - INJURY [None]
